FAERS Safety Report 8625046-9 (Version None)
Quarter: 2012Q3

REPORT INFORMATION
  Report Type: 
  Country: None (occurrence: None)
  Receive Date: 20120827
  Receipt Date: 20120821
  Transmission Date: 20120928
  Serious: No
  Sender: FDA-Public Use
  Company Number: US-009507513-1208USA009934

PATIENT

DRUGS (1)
  1. VYTORIN [Suspect]
     Indication: BLOOD CHOLESTEROL
     Dosage: 10/20 MG, QD
     Route: 048
     Dates: start: 20100101, end: 20120820

REACTIONS (1)
  - MYALGIA [None]
